FAERS Safety Report 9304310 (Version 2)
Quarter: 2014Q1

REPORT INFORMATION
  Report Type: Spontaneous
  Country: US (occurrence: US)
  Receive Date: 20130522
  Receipt Date: 20140213
  Transmission Date: 20141002
  Serious: No
  Sender: FDA-Public Use
  Company Number: US-PFIZER INC-2013158223

PATIENT
  Age: 59 Year
  Sex: Female
  Weight: 57.6 kg

DRUGS (6)
  1. ENBREL [Suspect]
     Indication: ARTHROPATHY
     Dosage: UNK
  2. XELJANZ [Suspect]
     Indication: ARTHROPATHY
     Dosage: 5 MG, 2X/DAY
     Dates: start: 2012, end: 20130430
  3. METHOTREXATE SODIUM [Suspect]
     Indication: ARTHROPATHY
     Dosage: UNK
  4. IMURAN [Suspect]
     Indication: ARTHROPATHY
     Dosage: UNK
  5. HUMIRA [Suspect]
     Indication: ARTHROPATHY
     Dosage: UNK
  6. METOPROLOL [Concomitant]
     Indication: PALPITATIONS
     Dosage: 25 MG, QD

REACTIONS (4)
  - Therapeutic response decreased [Unknown]
  - Herpes zoster [Recovering/Resolving]
  - Off label use [Unknown]
  - Post herpetic neuralgia [Unknown]
